FAERS Safety Report 9124343 (Version 1)
Quarter: 2013Q1

REPORT INFORMATION
  Report Type: Spontaneous
  Country: CA (occurrence: CA)
  Receive Date: 20130116
  Receipt Date: 20130116
  Transmission Date: 20140127
  Serious: Yes (Other)
  Sender: FDA-Public Use
  Company Number: CA-JNJFOC-20130105662

PATIENT
  Age: 8 Year
  Sex: Female

DRUGS (2)
  1. CLADRIBINE [Suspect]
     Indication: LANGERHANS^ CELL HISTIOCYTOSIS
     Route: 065
  2. CYTARABINE [Suspect]
     Indication: LANGERHANS^ CELL HISTIOCYTOSIS
     Route: 065

REACTIONS (2)
  - Xanthogranuloma [Recovering/Resolving]
  - Off label use [Unknown]
